FAERS Safety Report 12422384 (Version 1)
Quarter: 2016Q2

REPORT INFORMATION
  Report Type: Spontaneous
  Country: US (occurrence: US)
  Receive Date: 20160601
  Receipt Date: 20160601
  Transmission Date: 20160815
  Serious: No
  Sender: FDA-Public Use
  Company Number: PHEH2015US011918

PATIENT
  Sex: Female

DRUGS (2)
  1. FORADIL [Suspect]
     Active Substance: FORMOTEROL FUMARATE
     Indication: EMPHYSEMA
  2. FORADIL [Suspect]
     Active Substance: FORMOTEROL FUMARATE
     Indication: CHRONIC OBSTRUCTIVE PULMONARY DISEASE
     Dosage: 1 DF, BID
     Route: 055

REACTIONS (2)
  - Memory impairment [Unknown]
  - Accidental exposure to product [Unknown]
